FAERS Safety Report 19657576 (Version 2)
Quarter: 2021Q4

REPORT INFORMATION
  Report Type: Spontaneous
  Country: JP (occurrence: JP)
  Receive Date: 20210804
  Receipt Date: 20211007
  Transmission Date: 20220303
  Serious: Yes (Other)
  Sender: FDA-Public Use
  Company Number: JP-ALLERGAN-2127309US

PATIENT
  Sex: Female

DRUGS (3)
  1. BOTOX [Suspect]
     Active Substance: ONABOTULINUMTOXINA
     Indication: Facial spasm
     Dosage: UNK, SINGLE
     Route: 042
     Dates: start: 2021, end: 2021
  2. BOTOX [Suspect]
     Active Substance: ONABOTULINUMTOXINA
     Indication: Blepharospasm
  3. RIVOTRIL [Concomitant]
     Active Substance: CLONAZEPAM
     Indication: Facial spasm
     Route: 048

REACTIONS (10)
  - Progressive facial hemiatrophy [Not Recovered/Not Resolved]
  - Facial paralysis [Recovered/Resolved]
  - Facial paresis [Not Recovered/Not Resolved]
  - Eyelid function disorder [Not Recovered/Not Resolved]
  - Eye pain [Not Recovered/Not Resolved]
  - Visual impairment [Not Recovered/Not Resolved]
  - Product communication issue [Unknown]
  - Incorrect route of product administration [Unknown]
  - Lagophthalmos [Not Recovered/Not Resolved]
  - Speech disorder [Not Recovered/Not Resolved]

NARRATIVE: CASE EVENT DATE: 20210101
